FAERS Safety Report 7088162-1 (Version None)
Quarter: 2010Q4

REPORT INFORMATION
  Report Type: 
  Country: None (occurrence: None)
  Receive Date: 20101028
  Receipt Date: 20101019
  Transmission Date: 20110411
  Serious: Yes (Hospitalization)
  Sender: FDA-Public Use
  Company Number: 2010US003803

PATIENT
  Age: 44 Year
  Sex: Female
  Weight: 152 kg

DRUGS (16)
  1. AMEVIVE [Suspect]
     Indication: PSORIASIS
     Dosage: 15 MG, WEEKLY, INTRAMUSCULAR
     Route: 030
     Dates: start: 20090901, end: 20091008
  2. LANTUS [Concomitant]
  3. LASIX [Concomitant]
  4. CLARITIN [Concomitant]
  5. SEROQUEL [Concomitant]
  6. MAG64 (CALCIUM, CHLORIDE, MAGNESIUM) [Concomitant]
  7. CYMBALTA [Concomitant]
  8. PREDNISONE [Concomitant]
  9. SPIRIVA [Concomitant]
  10. ADVAIR DISKUS 100/50 [Concomitant]
  11. POTASSIUM (POTASSIUM) [Concomitant]
  12. LEVOTHYROXINE SODIUM [Concomitant]
  13. PRILOSEC (OMEPRAZOLE) [Concomitant]
  14. TRANSIENT [Concomitant]
  15. LORTAB [Concomitant]
  16. NARCOTICS [Concomitant]

REACTIONS (2)
  - NAUSEA [None]
  - NON-CARDIAC CHEST PAIN [None]
